FAERS Safety Report 9749677 (Version 1)
Quarter: 2013Q4

REPORT INFORMATION
  Report Type: Report from Study
  Country: DE (occurrence: DE)
  Receive Date: 20131212
  Receipt Date: 20131212
  Transmission Date: 20140711
  Serious: Yes (Hospitalization)
  Sender: FDA-Public Use
  Company Number: DE-ABBVIE-13P-062-1176031-00

PATIENT
  Sex: Female
  Weight: 59.1 kg

DRUGS (4)
  1. HUMIRA [Suspect]
     Indication: CROHN^S DISEASE
     Route: 058
     Dates: start: 20111108, end: 201306
  2. HUMIRA [Suspect]
     Dates: start: 201308
  3. BUDENOFALK [Concomitant]
     Indication: CROHN^S DISEASE
  4. PANTOPRAZOL [Concomitant]
     Indication: PRODUCT USED FOR UNKNOWN INDICATION

REACTIONS (1)
  - Female genital tract fistula [Recovered/Resolved]
